FAERS Safety Report 9170097 (Version 1)
Quarter: 2013Q1

REPORT INFORMATION
  Report Type: Spontaneous
  Country: US (occurrence: None)
  Receive Date: 20130314
  Receipt Date: 20130314
  Transmission Date: 20140127
  Serious: No
  Sender: FDA-Public Use
  Company Number: None

PATIENT
  Age: 49 Year
  Sex: Male
  Weight: 108.86 kg

DRUGS (1)
  1. AZITHROMYCIN 250 [Suspect]

REACTIONS (4)
  - Feeling abnormal [None]
  - Cardiac disorder [None]
  - Vision blurred [None]
  - Tremor [None]
